FAERS Safety Report 20198874 (Version 1)
Quarter: 2021Q4

REPORT INFORMATION
  Report Type: Spontaneous
  Country: US (occurrence: US)
  Receive Date: 20211217
  Receipt Date: 20211217
  Transmission Date: 20220303
  Serious: No
  Sender: FDA-Public Use
  Company Number: US-PACIRA-202000505

PATIENT

DRUGS (2)
  1. EXPAREL [Suspect]
     Active Substance: BUPIVACAINE
     Dosage: 10ML (133MG)
     Route: 065
     Dates: start: 20201109, end: 20201109
  2. ROPIVACAINE [Suspect]
     Active Substance: ROPIVACAINE
     Dosage: NOT PROVIDED
     Route: 065
     Dates: start: 20201109, end: 20201109

REACTIONS (1)
  - Labelled drug-drug interaction medication error [Unknown]

NARRATIVE: CASE EVENT DATE: 20201109
